FAERS Safety Report 8844494 (Version 1)
Quarter: 2012Q4

REPORT INFORMATION
  Report Type: Spontaneous
  Country: US (occurrence: None)
  Receive Date: 20121016
  Receipt Date: 20121016
  Transmission Date: 20130627
  Serious: No
  Sender: FDA-Public Use
  Company Number: DL2012-0816

PATIENT
  Age: 32 Year
  Sex: Female

DRUGS (2)
  1. MIFEPRISTONE [Suspect]
     Route: 048
     Dates: start: 20120719
  2. MISOPROSTOL [Suspect]
     Route: 002
     Dates: start: 20120720

REACTIONS (6)
  - Abortion incomplete [None]
  - Haemorrhage [None]
  - Nausea [None]
  - Headache [None]
  - Dizziness [None]
  - Anaemia [None]
